FAERS Safety Report 6965427-2 (Version None)
Quarter: 2010Q3

REPORT INFORMATION
  Report Type: 
  Country: None (occurrence: None)
  Receive Date: 20100903
  Receipt Date: 20100825
  Transmission Date: 20110219
  Serious: Yes (Other)
  Sender: FDA-Public Use
  Company Number: A0879099A

PATIENT
  Age: 44 Year
  Sex: Male

DRUGS (2)
  1. AVANDIA [Suspect]
     Route: 048
     Dates: start: 19990101, end: 20080101
  2. AVANDAMET [Suspect]
     Route: 048
     Dates: start: 19990101, end: 20000101

REACTIONS (1)
  - MYOCARDIAL INFARCTION [None]
